FAERS Safety Report 7791817-4 (Version None)
Quarter: 2011Q4

REPORT INFORMATION
  Report Type: 
  Country: None (occurrence: None)
  Receive Date: 20111003
  Receipt Date: 20110927
  Transmission Date: 20120403
  Serious: No
  Sender: FDA-Public Use
  Company Number: US-PFIZER INC-2011231325

PATIENT
  Sex: Female

DRUGS (4)
  1. CHANTIX [Suspect]
     Dosage: ONE TABLET DAILY
     Route: 048
     Dates: start: 20110101
  2. CHANTIX [Suspect]
     Dosage: EVERY OTHER DAY DOSING
     Dates: start: 20110101
  3. CHANTIX [Suspect]
     Dosage: UNK, 2X/DAY
     Route: 048
     Dates: start: 20110101, end: 20110101
  4. CHANTIX [Suspect]
     Indication: SMOKING CESSATION THERAPY
     Dosage: UNK
     Route: 048
     Dates: start: 20110401, end: 20110101

REACTIONS (2)
  - CRYING [None]
  - MOOD SWINGS [None]
